FAERS Safety Report 7150136-X (Version None)
Quarter: 2010Q4

REPORT INFORMATION
  Report Type: 
  Country: None (occurrence: None)
  Receive Date: 20101207
  Receipt Date: 20101207
  Transmission Date: 20110411
  Serious: Yes (Other)
  Sender: FDA-Public Use
  Company Number: None

PATIENT
  Age: 49 Year
  Sex: Female
  Weight: 78.9259 kg

DRUGS (1)
  1. PROPOXYPHENE HCL AND ACETAMINOPHEN [Suspect]
     Indication: PAIN
     Dosage: 60 4-6 HOURS PO
     Route: 048
     Dates: start: 20101016, end: 20101130

REACTIONS (4)
  - COLD SWEAT [None]
  - HEART RATE IRREGULAR [None]
  - PANIC ATTACK [None]
  - SYNCOPE [None]
